FAERS Safety Report 9118023 (Version 1)
Quarter: 2013Q1

REPORT INFORMATION
  Report Type: Report from Study
  Country: US (occurrence: US)
  Receive Date: 20130129
  Receipt Date: 20130129
  Transmission Date: 20140127
  Serious: No
  Sender: FDA-Public Use
  Company Number: US-ABBOTT-12P-163-0936964-00

PATIENT
  Age: 64 Year
  Sex: Female

DRUGS (17)
  1. HUMIRA 40 MG/0.8 ML PEN [Suspect]
     Indication: PSORIATIC ARTHROPATHY
     Dates: start: 20120315
  2. BENADRYL [Suspect]
     Indication: URTICARIA
     Dosage: 1 HOUR PRIOR TO INJECTION AND EVERY FOUR HOURS AS NEEDED
  3. ROBAXIN [Concomitant]
     Indication: PAIN
     Dosage: EVERY 6-8 HOURS
  4. METHOTREXATE [Concomitant]
     Indication: PSORIATIC ARTHROPATHY
  5. SYNTHROID [Concomitant]
     Indication: BARTTER^S SYNDROME
  6. VITAMIN B12 [Concomitant]
     Indication: PRODUCT USED FOR UNKNOWN INDICATION
  7. PREVACID [Concomitant]
     Indication: PRODUCT USED FOR UNKNOWN INDICATION
     Dosage: DAILY
  8. OXYGEN [Concomitant]
     Indication: PRODUCT USED FOR UNKNOWN INDICATION
  9. LYRICA [Concomitant]
     Indication: PAIN
     Dosage: 100MG 3 TIMES DAILY
  10. LORTAB [Concomitant]
     Indication: PAIN
     Dosage: 4-6 HOURS
  11. CALCIUM [Concomitant]
     Indication: PRODUCT USED FOR UNKNOWN INDICATION
     Dosage: 3 TIMES DAILY
  12. FOLIC ACID [Concomitant]
     Indication: PRODUCT USED FOR UNKNOWN INDICATION
     Dosage: 1MG DAILY
  13. SPIRONOLACTONE [Concomitant]
     Indication: PRODUCT USED FOR UNKNOWN INDICATION
     Dosage: 2 TABLETS PER DAY
  14. MAGNESIUM OXIDE [Concomitant]
     Indication: PRODUCT USED FOR UNKNOWN INDICATION
     Dosage: 12MG DAILY
  15. TRACLEER [Concomitant]
     Indication: PULMONARY HYPERTENSION
     Dosage: 62.5MG DAILY
  16. ZOLOFT [Concomitant]
     Indication: DEPRESSION
     Dosage: 100MG DAILY
  17. POTASSIUM [Concomitant]
     Indication: PRODUCT USED FOR UNKNOWN INDICATION

REACTIONS (15)
  - Somnolence [Unknown]
  - Injection site discolouration [Unknown]
  - Injection site discolouration [Unknown]
  - Injection site discolouration [Unknown]
  - Injection site urticaria [Recovered/Resolved]
  - Injection site urticaria [Recovering/Resolving]
  - Injection site urticaria [Unknown]
  - Injection site pruritus [Unknown]
  - Injection site pruritus [Recovering/Resolving]
  - Injection site pruritus [Unknown]
  - Hypersensitivity [Unknown]
  - Injection site erythema [Recovering/Resolving]
  - Injection site erythema [Unknown]
  - Injection site pain [Recovering/Resolving]
  - Injection site urticaria [Recovering/Resolving]
